FAERS Safety Report 19675417 (Version 1)
Quarter: 2021Q3

REPORT INFORMATION
  Report Type: Spontaneous
  Country: US (occurrence: US)
  Receive Date: 20210809
  Receipt Date: 20210809
  Transmission Date: 20211014
  Serious: Yes (Other)
  Sender: FDA-Public Use
  Company Number: US-TEVA-2021-US-1939611

PATIENT
  Sex: Female

DRUGS (1)
  1. VINORELBINE [Suspect]
     Active Substance: VINORELBINE TARTRATE
     Route: 065

REACTIONS (4)
  - Central nervous system lesion [Unknown]
  - Diarrhoea [Unknown]
  - Weight decreased [Unknown]
  - Disease progression [Unknown]
